FAERS Safety Report 4734236-7 (Version None)
Quarter: 2005Q3

REPORT INFORMATION
  Report Type: 
  Country: None (occurrence: None)
  Receive Date: 20050803
  Receipt Date: 20050803
  Transmission Date: 20060218
  Serious: Yes (Hospitalization)
  Sender: FDA-Public Use
  Company Number: None

PATIENT

DRUGS (2)
  1. NAPROSYN [Suspect]
     Dates: start: 20050324
  2. OMEPRAZOLE [Concomitant]

REACTIONS (2)
  - HAEMORRHAGE [None]
  - MELAENA [None]
